FAERS Safety Report 7672621-4 (Version None)
Quarter: 2011Q3

REPORT INFORMATION
  Report Type: 
  Country: None (occurrence: None)
  Receive Date: 20110809
  Receipt Date: 20110729
  Transmission Date: 20111222
  Serious: Yes (Other)
  Sender: FDA-Public Use
  Company Number: US-TYCO HEALTHCARE/MALLINCKRODT-T201101495

PATIENT
  Age: 81 Year
  Sex: Female

DRUGS (2)
  1. OPTIRAY 300 [Suspect]
     Indication: COMPUTERISED TOMOGRAM
     Dosage: UNK
     Dates: start: 20110317, end: 20110317
  2. SODIUM CHLORIDE [Suspect]
     Indication: COMPUTERISED TOMOGRAM
     Dosage: UNK
     Dates: start: 20110317, end: 20110317

REACTIONS (2)
  - AIR EMBOLISM [None]
  - DRUG ADMINISTRATION ERROR [None]
